FAERS Safety Report 16822011 (Version 1)
Quarter: 2019Q3

REPORT INFORMATION
  Report Type: Spontaneous
  Country: US (occurrence: US)
  Receive Date: 20190726
  Receipt Date: 20190726
  Transmission Date: 20191005
  Serious: Yes (Other)
  Sender: FDA-Public Use
  Company Number: None

PATIENT
  Age: 53 Year
  Sex: Male

DRUGS (7)
  1. IRON [Concomitant]
     Active Substance: IRON
  2. ALPRAZOLAM. [Suspect]
     Active Substance: ALPRAZOLAM
  3. TEMOZOLOMIDE. [Suspect]
     Active Substance: TEMOZOLOMIDE
     Indication: SKIN CANCER
     Dosage: ?          OTHER DOSE:5MG/2CAPSULES 140M;OTHER FREQUENCY:QD 21/28 DAYS;?
     Route: 048
     Dates: start: 20190521
  4. LEVOTHYROXIN [Concomitant]
     Active Substance: LEVOTHYROXINE
  5. PREDNISONE. [Concomitant]
     Active Substance: PREDNISONE
  6. PROCHLORPER [Concomitant]
  7. A-HYDROCORT [Concomitant]
     Active Substance: HYDROCORTISONE SODIUM SUCCINATE

REACTIONS (2)
  - Asthenia [None]
  - Mental status changes [None]
